FAERS Safety Report 6387381-7 (Version None)
Quarter: 2009Q3

REPORT INFORMATION
  Report Type: 
  Country: None (occurrence: None)
  Receive Date: 20090930
  Receipt Date: 20090914
  Transmission Date: 20100115
  Serious: Yes (Death)
  Sender: FDA-Public Use
  Company Number: 2008AL011327

PATIENT
  Age: 81 Year
  Sex: Female
  Weight: 58.514 kg

DRUGS (26)
  1. DIGOXIN [Suspect]
     Indication: HEART RATE IRREGULAR
     Dosage: PO
     Route: 048
  2. DIAZEPAM [Concomitant]
  3. WARFARIN SODIUM [Concomitant]
  4. CARVEDILOL [Concomitant]
  5. FUROSEMIDE [Concomitant]
  6. IPRATROPIUM [Concomitant]
  7. AMOXICILLIN [Concomitant]
  8. ZITHROMAX [Concomitant]
  9. BENZONATATE [Concomitant]
  10. PROPO-N/APAP [Concomitant]
  11. CEPHALEXIN [Concomitant]
  12. KETEK [Concomitant]
  13. PROMETHAZINE [Concomitant]
  14. DOXEPIN HCL [Concomitant]
  15. SKELAXIN [Concomitant]
  16. GLYCOLAX [Concomitant]
  17. CIPROFLOXACIN HYDROCHLORIDE [Concomitant]
  18. COREG [Concomitant]
  19. SPIRONOLACTONE [Concomitant]
  20. CLOBETASOL PROPIONATE [Concomitant]
  21. POLYETH GLYC [Concomitant]
  22. TRAMADOL HCL [Concomitant]
  23. ACETAMINOPHEN AND HYDROCODONE BITARTRATE [Concomitant]
  24. DOCUSATE SOD [Concomitant]
  25. CELEBREX [Concomitant]
  26. CAPTOPRIL [Concomitant]

REACTIONS (12)
  - ANXIETY [None]
  - BACK PAIN [None]
  - CARDIAC MURMUR [None]
  - CHRONIC OBSTRUCTIVE PULMONARY DISEASE [None]
  - CONFUSIONAL STATE [None]
  - MENTAL STATUS CHANGES [None]
  - MULTIPLE INJURIES [None]
  - PAIN [None]
  - PANCREATITIS [None]
  - ROAD TRAFFIC ACCIDENT [None]
  - THERAPEUTIC AGENT TOXICITY [None]
  - VENTRICULAR FIBRILLATION [None]
